FAERS Safety Report 4818693-3 (Version None)
Quarter: 2005Q4

REPORT INFORMATION
  Report Type: 
  Country: None (occurrence: None)
  Receive Date: 20051102
  Receipt Date: 20050414
  Transmission Date: 20060501
  Serious: Yes (Hospitalization)
  Sender: FDA-Public Use
  Company Number: US-MERCK-0504USA02938

PATIENT
  Age: 51 Year
  Sex: Male
  Weight: 127 kg

DRUGS (7)
  1. VIOXX [Suspect]
     Indication: MONARTHRITIS
     Route: 048
     Dates: start: 20010101, end: 20041001
  2. GLUCOPHAGE [Concomitant]
     Indication: DIABETES MELLITUS
     Route: 065
  3. AVANDIA [Concomitant]
     Indication: DIABETES MELLITUS
     Route: 065
  4. AMARYL [Concomitant]
     Indication: DIABETES MELLITUS
     Route: 065
  5. LIPITOR [Concomitant]
     Indication: BLOOD CHOLESTEROL INCREASED
     Route: 065
     Dates: start: 19990101, end: 20050301
  6. PAXIL [Concomitant]
     Indication: ANXIETY
     Route: 065
  7. ALTACE [Concomitant]
     Indication: BLOOD PRESSURE
     Route: 065
     Dates: start: 19990101, end: 20050301

REACTIONS (4)
  - CORONARY ARTERY OCCLUSION [None]
  - INJURY [None]
  - MYOCARDIAL INFARCTION [None]
  - SLEEP APNOEA SYNDROME [None]
